FAERS Safety Report 16472731 (Version 5)
Quarter: 2020Q3

REPORT INFORMATION
  Report Type: Report from Study
  Country: US (occurrence: US)
  Receive Date: 20190625
  Receipt Date: 20200716
  Transmission Date: 20201102
  Serious: Yes (Other)
  Sender: FDA-Public Use
  Company Number: US-BEH-2019103332

PATIENT
  Age: 46 Year
  Sex: Female
  Weight: 54.42 kg

DRUGS (2)
  1. HAEGARDA [Suspect]
     Active Substance: HUMAN C1-ESTERASE INHIBITOR
     Indication: PROPHYLAXIS
  2. HAEGARDA [Suspect]
     Active Substance: HUMAN C1-ESTERASE INHIBITOR
     Indication: HEREDITARY ANGIOEDEMA
     Dosage: 2000 UNK, EVERY 3 OR 4 DAYS
     Route: 058
     Dates: start: 20190617

REACTIONS (21)
  - Dizziness [Recovering/Resolving]
  - Abdominal pain [Recovering/Resolving]
  - Rash [Unknown]
  - Nausea [Unknown]
  - Headache [Unknown]
  - Nausea [Recovering/Resolving]
  - Rhinorrhoea [Unknown]
  - Systemic lupus erythematosus [Unknown]
  - Hereditary angioedema [Unknown]
  - Hereditary angioedema [Unknown]
  - Fatigue [Recovering/Resolving]
  - Nausea [Recovering/Resolving]
  - Injury associated with device [Unknown]
  - Skin burning sensation [Unknown]
  - Infusion site pain [Recovering/Resolving]
  - Sneezing [Unknown]
  - Nasal congestion [Unknown]
  - Device use error [Unknown]
  - Hereditary angioedema [Recovering/Resolving]
  - Infusion site bruising [Unknown]
  - Malaise [Unknown]

NARRATIVE: CASE EVENT DATE: 20190617
